FAERS Safety Report 19099566 (Version 1)
Quarter: 2021Q2

REPORT INFORMATION
  Report Type: Spontaneous
  Country: CA (occurrence: CA)
  Receive Date: 20210406
  Receipt Date: 20210406
  Transmission Date: 20210717
  Serious: Yes (Hospitalization, Other)
  Sender: FDA-Public Use
  Company Number: CA-VALIDUS PHARMACEUTICALS LLC-CA-2021VAL000959

PATIENT
  Age: 83 Year
  Sex: Male

DRUGS (6)
  1. SANDOSTATIN [Suspect]
     Active Substance: OCTREOTIDE ACETATE
     Dosage: 20 MG, QM
     Route: 030
  2. FUROSEMIDE. [Suspect]
     Active Substance: FUROSEMIDE
     Indication: PRODUCT USED FOR UNKNOWN INDICATION
     Dosage: UNK
     Route: 065
  3. SANDOSTATIN [Suspect]
     Active Substance: OCTREOTIDE ACETATE
     Dosage: 40 MG, QM
     Route: 030
  4. SANDOSTATIN [Suspect]
     Active Substance: OCTREOTIDE ACETATE
     Dosage: 40 MG, QM
     Route: 030
  5. SANDOSTATIN [Suspect]
     Active Substance: OCTREOTIDE ACETATE
     Indication: CARCINOID TUMOUR
     Dosage: 30 MG, QM
     Route: 030
  6. SANDOSTATIN [Suspect]
     Active Substance: OCTREOTIDE ACETATE
     Dosage: UNK
     Route: 030

REACTIONS (34)
  - Induration [Recovered/Resolved]
  - Oedema peripheral [Recovered/Resolved]
  - Fatigue [Recovered/Resolved]
  - Blood pressure systolic increased [Recovered/Resolved]
  - Bronchitis [Recovered/Resolved]
  - Dizziness [Recovered/Resolved]
  - Blood pressure diastolic decreased [Recovered/Resolved]
  - Bacteraemia [Recovered/Resolved]
  - Blood pressure increased [Recovered/Resolved]
  - Clostridium difficile infection [Recovered/Resolved]
  - Escherichia infection [Recovered/Resolved]
  - Hypokinesia [Recovered/Resolved]
  - Malignant neoplasm progression [Recovered/Resolved]
  - Nosocomial infection [Recovered/Resolved]
  - Speech disorder [Recovered/Resolved]
  - Headache [Recovered/Resolved]
  - Dementia [Recovered/Resolved]
  - Injection site inflammation [Recovered/Resolved]
  - Pain [Recovered/Resolved]
  - Platelet count decreased [Recovered/Resolved]
  - Haemoptysis [Recovered/Resolved]
  - Transient ischaemic attack [Recovered/Resolved]
  - White blood cell count increased [Recovered/Resolved]
  - Anxiety [Recovered/Resolved]
  - Back pain [Recovered/Resolved]
  - Body temperature decreased [Recovered/Resolved]
  - Hypertension [Recovered/Resolved]
  - Metastases to liver [Recovered/Resolved]
  - Dyspnoea exertional [Recovered/Resolved]
  - Enterococcal infection [Recovered/Resolved]
  - Food poisoning [Recovered/Resolved]
  - Dyspnoea [Recovered/Resolved]
  - Blood pressure decreased [Recovered/Resolved]
  - Nausea [Recovered/Resolved]
